FAERS Safety Report 5121932-5 (Version None)
Quarter: 2006Q4

REPORT INFORMATION
  Report Type: 
  Country: None (occurrence: None)
  Receive Date: 20061006
  Receipt Date: 20060928
  Transmission Date: 20070319
  Serious: Yes (Other)
  Sender: FDA-Public Use
  Company Number: 2006UW19092

PATIENT
  Age: 67 Year
  Sex: Male

DRUGS (16)
  1. CRESTOR [Suspect]
     Route: 048
  2. GLIPIZIDE [Concomitant]
  3. PRIMIDONE [Concomitant]
  4. LISINOPRIL [Concomitant]
  5. GEMFIBROZIL [Concomitant]
  6. ATORVASTATIN CALCIUM [Concomitant]
  7. ROSIGLITAZONE MALEATE [Concomitant]
  8. TOPIRAMATE [Concomitant]
  9. BUPROBAN [Concomitant]
  10. OMEPRAZOLE [Concomitant]
  11. CENTRUM [Concomitant]
  12. ASPIRIN [Concomitant]
  13. LEKOVIT CA [Concomitant]
  14. VICKS [Concomitant]
  15. TRIAMCINOLONE ACETONIDE [Concomitant]
  16. LEVOTHYROXINE SODIUM [Concomitant]

REACTIONS (1)
  - DEEP VEIN THROMBOSIS [None]
